FAERS Safety Report 10985645 (Version 1)
Quarter: 2015Q1

REPORT INFORMATION
  Report Type: Spontaneous
  Country: US (occurrence: None)
  Receive Date: 20150304
  Receipt Date: 20150304
  Transmission Date: 20150721
  Serious: Yes (Other)
  Sender: FDA-Public Use
  Company Number: 2014GMK012670

PATIENT
  Age: 68 Year
  Sex: Female

DRUGS (8)
  1. ZOCOR [Concomitant]
     Active Substance: SIMVASTATIN
  2. ALBUTEROL (SALBUTAMOL) [Concomitant]
     Active Substance: ALBUTEROL
  3. LOTENSIN [Concomitant]
     Active Substance: BENAZEPRIL HYDROCHLORIDE
  4. MONTELUKAST [Suspect]
     Active Substance: MONTELUKAST SODIUM
     Indication: ASTHMA
     Dosage: 10 MG, OD ?DURATION 122 DAYS
  5. NEURONTIN (GABEPENTIN) [Concomitant]
  6. FLONASE [Concomitant]
     Active Substance: FLUTICASONE PROPIONATE
  7. LASIX [Concomitant]
     Active Substance: FUROSEMIDE
  8. INSULIN [Concomitant]
     Active Substance: INSULIN NOS

REACTIONS (6)
  - Dyspnoea [None]
  - Rash [None]
  - Chest discomfort [None]
  - Cough [None]
  - Allergic granulomatous angiitis [None]
  - Vasculitis necrotising [None]
